FAERS Safety Report 24114819 (Version 1)
Quarter: 2024Q3

REPORT INFORMATION
  Report Type: Spontaneous
  Country: DE (occurrence: DE)
  Receive Date: 20240721
  Receipt Date: 20240721
  Transmission Date: 20241016
  Serious: Yes (Other)
  Sender: CSL BEHRING
  Company Number: None

PATIENT
  Age: 40 Year
  Sex: Female
  Weight: 82 kg

DRUGS (2)
  1. RHOPHYLAC [Suspect]
     Active Substance: HUMAN RHO(D) IMMUNE GLOBULIN
     Indication: Abortion spontaneous
     Route: 030
     Dates: start: 20240415, end: 20240415
  2. RHOPHYLAC [Suspect]
     Active Substance: HUMAN RHO(D) IMMUNE GLOBULIN
     Indication: Abortion spontaneous
     Route: 030
     Dates: start: 20240415, end: 20240415

REACTIONS (14)
  - Angina pectoris [Not Recovered/Not Resolved]
  - Asthenia [Not Recovered/Not Resolved]
  - Lymphadenopathy [Not Recovered/Not Resolved]
  - Rash [Recovering/Resolving]
  - Dizziness [Unknown]
  - Pain in extremity [Not Recovered/Not Resolved]
  - Chills [Recovered/Resolved]
  - Headache [Not Recovered/Not Resolved]
  - Pruritus [Recovering/Resolving]
  - Pyrexia [Recovered/Resolved]
  - Visual impairment [Not Recovered/Not Resolved]
  - Head discomfort [Not Recovered/Not Resolved]
  - Fatigue [Not Recovered/Not Resolved]
  - Palpitations [Recovered/Resolved]

NARRATIVE: CASE EVENT DATE: 20240417
